FAERS Safety Report 10051195 (Version 3)
Quarter: 2014Q2

REPORT INFORMATION
  Report Type: Spontaneous
  Country: NL (occurrence: NL)
  Receive Date: 20140401
  Receipt Date: 20140528
  Transmission Date: 20141212
  Serious: Yes (Hospitalization, Other)
  Sender: FDA-Public Use
  Company Number: NL-INCYTE CORPORATION-2014IN000729

PATIENT
  Age: 75 Year
  Sex: Male

DRUGS (10)
  1. JAKAVI [Suspect]
     Indication: MYELOFIBROSIS
     Dosage: 15 MG, BID EVERY CYCLE
     Route: 065
     Dates: start: 20131125
  2. ASAFLOW [Concomitant]
     Dosage: UNK UKN, UNK
     Dates: start: 20120702
  3. FOLIC ACID [Concomitant]
     Dosage: UNK UKN, UNK
     Dates: start: 20120702
  4. THIAMINE [Concomitant]
     Dosage: UNK UKN, UNK
     Dates: start: 20131112
  5. AUGMENTIN [Concomitant]
     Dosage: UNK
     Dates: start: 20130618, end: 20130625
  6. FERRIPROX [Concomitant]
     Dosage: UNK UKN, UNK
     Dates: start: 20130528, end: 20131112
  7. FENTANYL [Concomitant]
     Dosage: UNK UKN, UNK
     Dates: start: 20130917, end: 20130917
  8. DORMICUM                           /00634101/ [Concomitant]
     Dosage: UNK
     Dates: start: 20130917, end: 20130917
  9. XYLOCAINE                          /00033402/ [Concomitant]
     Dosage: UNK
     Dates: start: 20130917, end: 20130917
  10. RED BLOOD CELLS [Concomitant]
     Dosage: UNK UKN, UNK
     Dates: start: 20120614, end: 20130917

REACTIONS (7)
  - Abdominal abscess [Unknown]
  - Abdominal discomfort [Unknown]
  - Liver abscess [Unknown]
  - Confusional state [Recovered/Resolved]
  - Cognitive disorder [Recovered/Resolved]
  - Back pain [Not Recovered/Not Resolved]
  - Abdominal pain [Not Recovered/Not Resolved]
